FAERS Safety Report 15656913 (Version 1)
Quarter: 2018Q4

REPORT INFORMATION
  Report Type: Spontaneous
  Country: ES (occurrence: ES)
  Receive Date: 20181126
  Receipt Date: 20181126
  Transmission Date: 20190205
  Serious: Yes (Death, Hospitalization, Disabling, Other)
  Sender: FDA-Public Use
  Company Number: ES-SAKK-2018SA319696AA

PATIENT
  Age: 19 Year
  Sex: Male

DRUGS (1)
  1. MYOZYME [Suspect]
     Active Substance: ALGLUCOSIDASE ALFA
     Indication: GLYCOGEN STORAGE DISEASE TYPE II
     Dosage: 40 IU; 4 DOSES AT MONTH
     Route: 041
     Dates: start: 2002, end: 201811

REACTIONS (6)
  - Muscle atrophy [Unknown]
  - Bedridden [Unknown]
  - Eyelid disorder [Unknown]
  - Mechanical ventilation [Unknown]
  - Intentional overdose [Unknown]
  - Disease progression [Fatal]
